FAERS Safety Report 8796088 (Version 1)
Quarter: 2012Q4

REPORT INFORMATION
  Report Type: 
  Country: US (occurrence: US)
  Receive Date: 20120919
  Receipt Date: 20120919
  Transmission Date: 20130627
  Serious: No
  Sender: FDA-Public Use
  Company Number: US-B.I. PHARMACEUTICALS,INC./RIDGEFIELD-2012-BP-22256BP

PATIENT
  Age: 86 Year
  Sex: Female
  Weight: 71 kg

DRUGS (8)
  1. SPIRIVA [Suspect]
     Indication: DYSPNOEA
     Dosage: 18 mcg
     Route: 055
     Dates: start: 2010
  2. POTASSIUM [Concomitant]
     Indication: JOINT SWELLING
     Dosage: 30 mEq
     Route: 048
     Dates: start: 2009
  3. LEVOTHYROXINE [Concomitant]
     Indication: THYROID HORMONE REPLACEMENT THERAPY
     Dosage: 88 mcg
     Route: 048
     Dates: start: 1962
  4. WARFARIN [Concomitant]
     Dosage: 2.5 mg
     Route: 048
     Dates: start: 2009
  5. LOSARTIN [Concomitant]
     Route: 048
     Dates: start: 2009
  6. METOPROLOL [Concomitant]
     Dosage: 25 mg
     Route: 048
     Dates: start: 2009
  7. FUROSEMIDE [Concomitant]
     Dosage: 20 mg
     Route: 048
     Dates: start: 2009
  8. TYLENOL [Concomitant]
     Indication: BACK PAIN
     Dosage: 1000 mg
     Route: 048
     Dates: start: 2011

REACTIONS (2)
  - Wheezing [Recovered/Resolved]
  - Product quality issue [Unknown]
